FAERS Safety Report 23895751 (Version 4)
Quarter: 2024Q3

REPORT INFORMATION
  Report Type: Spontaneous
  Country: GB (occurrence: GB)
  Receive Date: 20240524
  Receipt Date: 20240819
  Transmission Date: 20241016
  Serious: Yes (Hospitalization)
  Sender: MYLAN
  Company Number: GB-MYLANLABS-2024M1046394

PATIENT
  Sex: Male

DRUGS (2)
  1. CLOZARIL [Suspect]
     Active Substance: CLOZAPINE
     Indication: Schizophrenia
     Dosage: UNK, (STOP DATE: APPROXIMATELY TWO WEEKS AGO 01-MAY-2024)
     Route: 048
     Dates: start: 20080507, end: 202405
  2. CLOZARIL [Suspect]
     Active Substance: CLOZAPINE
     Dosage: UNK
     Route: 048
     Dates: start: 20240603

REACTIONS (2)
  - Mental impairment [Unknown]
  - Treatment noncompliance [Unknown]
